FAERS Safety Report 7801291-7 (Version None)
Quarter: 2011Q4

REPORT INFORMATION
  Report Type: 
  Country: None (occurrence: None)
  Receive Date: 20111007
  Receipt Date: 20091103
  Transmission Date: 20120403
  Serious: No
  Sender: FDA-Public Use
  Company Number: 2009BI035992

PATIENT
  Sex: Female

DRUGS (2)
  1. AMPYRA [Concomitant]
  2. TYSABRI [Suspect]
     Indication: MULTIPLE SCLEROSIS
     Route: 042
     Dates: start: 20081202

REACTIONS (8)
  - FEELING ABNORMAL [None]
  - NASOPHARYNGITIS [None]
  - INITIAL INSOMNIA [None]
  - COORDINATION ABNORMAL [None]
  - VISUAL ACUITY REDUCED [None]
  - MEMORY IMPAIRMENT [None]
  - FATIGUE [None]
  - PAIN [None]
